FAERS Safety Report 8185410-1 (Version None)
Quarter: 2012Q1

REPORT INFORMATION
  Report Type: 
  Country: None (occurrence: None)
  Receive Date: 20120305
  Receipt Date: 20120302
  Transmission Date: 20120608
  Serious: Yes (Disabling)
  Sender: FDA-Public Use
  Company Number: PHEH2012US003015

PATIENT
  Sex: Female
  Weight: 58.957 kg

DRUGS (5)
  1. GILENYA [Suspect]
     Indication: MULTIPLE SCLEROSIS
     Dosage: 0.5 MG, QD
     Route: 048
     Dates: start: 20120113, end: 20120124
  2. GILENYA [Suspect]
     Dosage: 0.5 MG, QD
     Route: 048
     Dates: start: 20120217
  3. FLUORETTEN [Concomitant]
  4. LEVOTHYROXINE SODIUM [Concomitant]
  5. IRBESARTAN [Concomitant]

REACTIONS (4)
  - HEADACHE [None]
  - DIARRHOEA [None]
  - EYELID OEDEMA [None]
  - NAUSEA [None]
